FAERS Safety Report 8588664-2 (Version None)
Quarter: 2012Q3

REPORT INFORMATION
  Report Type: 
  Country: None (occurrence: None)
  Receive Date: 20120813
  Receipt Date: 20120801
  Transmission Date: 20120928
  Serious: Yes (Hospitalization)
  Sender: FDA-Public Use
  Company Number: US-BAYER-2012-078967

PATIENT
  Age: 27 Year
  Sex: Female
  Weight: 102.95 kg

DRUGS (11)
  1. EFFEXOR [Concomitant]
  2. FLONASE [Concomitant]
  3. VENLAFAXINE [Concomitant]
  4. BACLOFEN [Concomitant]
     Dosage: 10 MG, UNK
  5. AZITHROMYCIN [Concomitant]
     Dosage: 250 MG, UNK
  6. OTHER ANALGESICS AND ANTIPYRETICS [Concomitant]
  7. STATIN [Concomitant]
  8. YAZ [Suspect]
  9. DROSPIRENONE AND ETHINYL ESTRADIOL [Suspect]
  10. ETODOLAC [Concomitant]
     Dosage: 400 MG, UNK
  11. FLUTICASONE PROPIONATE [Concomitant]

REACTIONS (1)
  - CEREBROVASCULAR ACCIDENT [None]
